FAERS Safety Report 19516646 (Version 1)
Quarter: 2021Q3

REPORT INFORMATION
  Report Type: Report from Study
  Country: None (occurrence: US)
  Receive Date: 20210709
  Receipt Date: 20210709
  Transmission Date: 20211014
  Serious: Yes (Other)
  Sender: FDA-Public Use
  Company Number: US-ABBVIE-21K-163-3983174-00

PATIENT
  Sex: Female

DRUGS (1)
  1. CREON [Suspect]
     Active Substance: PANCRELIPASE AMYLASE\PANCRELIPASE LIPASE\PANCRELIPASE PROTEASE
     Indication: PRODUCT USED FOR UNKNOWN INDICATION
     Route: 048

REACTIONS (6)
  - Hysterectomy [Unknown]
  - Cataract [Unknown]
  - Intervertebral disc operation [Unknown]
  - Colonoscopy [Unknown]
  - Meniscus operation [Unknown]
  - Hysterectomy [Unknown]

NARRATIVE: CASE EVENT DATE: 1999
